FAERS Safety Report 22400018 (Version 1)
Quarter: 2023Q2

REPORT INFORMATION
  Report Type: Spontaneous
  Country: US (occurrence: US)
  Receive Date: 20230602
  Receipt Date: 20230602
  Transmission Date: 20230722
  Serious: Yes (Disabling, Other)
  Sender: FDA-Public Use
  Company Number: US-ORGANON-O2306USA000042

PATIENT
  Sex: Male

DRUGS (1)
  1. SINGULAIR [Suspect]
     Active Substance: MONTELUKAST SODIUM
     Indication: Asthma
     Dosage: UNK
     Route: 048
     Dates: start: 20181024, end: 202304

REACTIONS (21)
  - Noninfective encephalitis [Recovering/Resolving]
  - Abnormal behaviour [Recovering/Resolving]
  - Mental disorder [Recovering/Resolving]
  - Intrusive thoughts [Recovering/Resolving]
  - Dermatillomania [Recovering/Resolving]
  - Compulsive lip biting [Recovering/Resolving]
  - Self-injurious ideation [Recovering/Resolving]
  - Enuresis [Recovering/Resolving]
  - Sleep disorder [Recovering/Resolving]
  - Nightmare [Recovering/Resolving]
  - Tic [Recovering/Resolving]
  - Suicidal ideation [Recovering/Resolving]
  - Aggression [Recovering/Resolving]
  - Insomnia [Recovering/Resolving]
  - Neuropsychiatric symptoms [Recovering/Resolving]
  - Obsessive-compulsive disorder [Recovering/Resolving]
  - Fear [Recovering/Resolving]
  - Crying [Recovering/Resolving]
  - Psychotic disorder [Recovering/Resolving]
  - Decreased interest [Recovering/Resolving]
  - Tremor [Recovering/Resolving]

NARRATIVE: CASE EVENT DATE: 20220101
